FAERS Safety Report 4296002-9 (Version None)
Quarter: 2004Q1

REPORT INFORMATION
  Report Type: 
  Country: None (occurrence: None)
  Receive Date: 20040212
  Receipt Date: 20040205
  Transmission Date: 20041129
  Serious: Yes (Other)
  Sender: FDA-Public Use
  Company Number: AR-JNJFOC-20040201153

PATIENT

DRUGS (2)
  1. TOPAMAX [Suspect]
     Indication: EPILEPSY
  2. VALPROATE SODIUM [Suspect]
     Indication: EPILEPSY

REACTIONS (1)
  - HEPATIC ENCEPHALOPATHY [None]
